FAERS Safety Report 5350355-9 (Version None)
Quarter: 2007Q2

REPORT INFORMATION
  Report Type: 
  Country: None (occurrence: None)
  Receive Date: 20070516
  Receipt Date: 20070112
  Transmission Date: 20071010
  Serious: Yes (Other)
  Sender: FDA-Public Use
  Company Number: 2006123878

PATIENT
  Age: 24 Year
  Sex: Female
  Weight: 45.4 kg

DRUGS (1)
  1. DEPO-PROVERA [Suspect]
     Indication: CONTRACEPTION
     Dosage: (SINGLE INJECTION),INTRAMUSCULAR
     Route: 030
     Dates: start: 20060623, end: 20060623

REACTIONS (2)
  - ALOPECIA [None]
  - DEPRESSION [None]
